FAERS Safety Report 21570744 (Version 1)
Quarter: 2022Q4

REPORT INFORMATION
  Report Type: Spontaneous
  Country: US (occurrence: None)
  Receive Date: 20221106
  Receipt Date: 20221106
  Transmission Date: 20230113
  Serious: No
  Sender: FDA-Public Use
  Company Number: None

PATIENT

DRUGS (2)
  1. PAXLOVID [Suspect]
     Active Substance: NIRMATRELVIR\RITONAVIR
  2. ENVARSUS XR [Suspect]
     Active Substance: TACROLIMUS

REACTIONS (9)
  - Drug interaction [None]
  - Circumstance or information capable of leading to medication error [None]
  - Communication disorder [None]
  - Contraindicated product administered [None]
  - Headache [None]
  - Cough [None]
  - Oropharyngeal pain [None]
  - Drug level above therapeutic [None]
  - Blood creatinine increased [None]
